FAERS Safety Report 14146589 (Version 2)
Quarter: 2017Q4

REPORT INFORMATION
  Report Type: Report from Study
  Country: US (occurrence: BR)
  Receive Date: 20171031
  Receipt Date: 20171103
  Transmission Date: 20180321
  Serious: Yes (Life-Threatening, Other)
  Sender: FDA-Public Use
  Company Number: US-SUNOVION-2017SUN004672

PATIENT
  Sex: Female
  Weight: 69 kg

DRUGS (7)
  1. LOTAR [Concomitant]
     Active Substance: AMLODIPINE\LOSARTAN
     Indication: HYPERTENSION
     Dosage: UNKNOWN
     Route: 065
  2. INDACATEROL AND GLYCOPYRROLATE [Suspect]
     Active Substance: GLYCOPYRROLATE\INDACATEROL MALEATE
     Indication: PULMONARY OEDEMA
     Dosage: 1 DF, QD (50/110UG)
     Route: 055
     Dates: start: 201706
  3. ROSUCOR [Concomitant]
     Active Substance: ROSUVASTATIN CALCIUM
     Dosage: 10 MG, UNK
  4. MIFLASONE [Concomitant]
     Active Substance: BECLOMETHASONE DIPROPIONATE
     Dosage: 200 UNKNOWN
     Route: 065
  5. NEBLOCK [Concomitant]
     Active Substance: NEBIVOLOL HYDROCHLORIDE
     Indication: HYPERTENSION
     Dosage: UNKNOWN
     Route: 065
  6. BAMIFIX [Concomitant]
     Active Substance: BAMIFYLLINE HYDROCHLORIDE
     Dosage: 300 MG, UNK
  7. VASOGARD [Concomitant]
     Active Substance: CILOSTAZOL
     Dosage: 100 MG, UNK

REACTIONS (8)
  - Dyspnoea [Not Recovered/Not Resolved]
  - Arterial occlusive disease [Unknown]
  - Asthenia [Unknown]
  - Feeling abnormal [Unknown]
  - Nervousness [Unknown]
  - Oedema [Unknown]
  - Weight increased [Unknown]
  - Product use in unapproved indication [Unknown]
